FAERS Safety Report 5902906-0 (Version None)
Quarter: 2008Q3

REPORT INFORMATION
  Report Type: 
  Country: None (occurrence: None)
  Receive Date: 20080930
  Receipt Date: 20080922
  Transmission Date: 20090109
  Serious: Yes (Other)
  Sender: FDA-Public Use
  Company Number: PHHY2008JP22574

PATIENT
  Age: 28 Year
  Sex: Female

DRUGS (1)
  1. LUDIOMIL [Suspect]
     Dosage: UNK
     Route: 048
     Dates: start: 20070901, end: 20071001

REACTIONS (1)
  - LIVER DISORDER [None]
